FAERS Safety Report 24915548 (Version 1)
Quarter: 2025Q1

REPORT INFORMATION
  Report Type: Report from Study
  Country: US (occurrence: US)
  Receive Date: 20250203
  Receipt Date: 20250203
  Transmission Date: 20250409
  Serious: Yes (Other)
  Sender: ABBVIE
  Company Number: US-ABBVIE-6110861

PATIENT
  Age: 65 Year
  Sex: Female

DRUGS (4)
  1. RINVOQ [Suspect]
     Active Substance: UPADACITINIB
     Indication: Colitis ulcerative
     Route: 048
     Dates: start: 20230101
  2. LANSOPRAZOLE [Concomitant]
     Active Substance: LANSOPRAZOLE
     Indication: Antacid therapy
     Route: 065
  3. ATORVASTATIN [Concomitant]
     Active Substance: ATORVASTATIN
     Indication: Blood cholesterol abnormal
     Route: 065
  4. STELARA [Concomitant]
     Active Substance: USTEKINUMAB
     Indication: Colitis ulcerative
     Route: 065

REACTIONS (13)
  - Upper limb fracture [Unknown]
  - Ligament rupture [Not Recovered/Not Resolved]
  - Shoulder fracture [Unknown]
  - Arthropathy [Unknown]
  - Shoulder fracture [Unknown]
  - Pain in extremity [Unknown]
  - Foot fracture [Recovered/Resolved]
  - Upper limb fracture [Recovered/Resolved]
  - Osteoporosis [Not Recovered/Not Resolved]
  - Lower limb fracture [Not Recovered/Not Resolved]
  - Fall [Unknown]
  - Osteoarthritis [Not Recovered/Not Resolved]
  - Arthritis [Not Recovered/Not Resolved]

NARRATIVE: CASE EVENT DATE: 20230301
